FAERS Safety Report 4772062-3 (Version None)
Quarter: 2005Q3

REPORT INFORMATION
  Report Type: 
  Country: None (occurrence: None)
  Receive Date: 20050918
  Receipt Date: 20050414
  Transmission Date: 20060218
  Serious: Yes (Hospitalization)
  Sender: FDA-Public Use
  Company Number: US-MERCK-0504USA02905

PATIENT
  Age: 66 Year
  Sex: Female
  Weight: 77 kg

DRUGS (1)
  1. VIOXX [Suspect]
     Indication: OSTEOARTHRITIS
     Route: 048
     Dates: start: 20011001, end: 20040608

REACTIONS (7)
  - CEREBROVASCULAR ACCIDENT [None]
  - HAEMATOCHEZIA [None]
  - HAEMORRHAGE [None]
  - HYPERTENSION [None]
  - INJURY [None]
  - INSOMNIA [None]
  - OEDEMA PERIPHERAL [None]
